FAERS Safety Report 16434489 (Version 1)
Quarter: 2019Q2

REPORT INFORMATION
  Report Type: Spontaneous
  Country: US (occurrence: US)
  Receive Date: 20190614
  Receipt Date: 20190614
  Transmission Date: 20190711
  Serious: No
  Sender: FDA-Public Use
  Company Number: US-JNJFOC-20070702152

PATIENT
  Age: 75 Year
  Sex: Female
  Weight: 81.65 kg

DRUGS (2)
  1. FENTANYL TRANSDERMAL SYSTEM [Suspect]
     Active Substance: FENTANYL
     Indication: PAIN
     Dosage: 2 75 UG/HR PATCHES
     Route: 062
     Dates: start: 20070701
  2. COUMADIN [Concomitant]
     Active Substance: WARFARIN SODIUM
     Indication: CARDIAC ASSISTANCE DEVICE USER
     Route: 048
     Dates: start: 2004

REACTIONS (1)
  - Application site rash [Not Recovered/Not Resolved]

NARRATIVE: CASE EVENT DATE: 20070704
